FAERS Safety Report 4846581-5 (Version None)
Quarter: 2005Q4

REPORT INFORMATION
  Report Type: 
  Country: None (occurrence: None)
  Receive Date: 20051202
  Receipt Date: 20051119
  Transmission Date: 20060501
  Serious: Yes (Other)
  Sender: FDA-Public Use
  Company Number: 2005046931

PATIENT
  Age: 61 Year
  Sex: Female
  Weight: 79.3795 kg

DRUGS (10)
  1. NEURONTIN [Suspect]
     Indication: FACIAL PALSY
     Dosage: 300 MG (100 MG, 3 IN 1 D), UNKNOWN
     Dates: start: 20040730
  2. BEXTRA [Suspect]
     Indication: ILL-DEFINED DISORDER
  3. MAXZIDE [Concomitant]
  4. LEVOTHROID [Concomitant]
  5. SYNTHROID [Concomitant]
  6. ZETIA [Concomitant]
  7. MACRODANTIN [Concomitant]
  8. TEGRETOL [Concomitant]
  9. WARFARIN (WARFARIN) [Concomitant]
  10. PREDNISONE [Concomitant]

REACTIONS (9)
  - AGNOSIA [None]
  - ATRIAL FIBRILLATION [None]
  - COGNITIVE DISORDER [None]
  - DISEASE RECURRENCE [None]
  - DRUG INEFFECTIVE [None]
  - FACIAL PALSY [None]
  - PAIN OF SKIN [None]
  - SPEECH DISORDER [None]
  - TRANSIENT ISCHAEMIC ATTACK [None]
